FAERS Safety Report 24629238 (Version 1)
Quarter: 2024Q4

REPORT INFORMATION
  Report Type: Report from Study
  Country: US (occurrence: US)
  Receive Date: 20241118
  Receipt Date: 20241118
  Transmission Date: 20250114
  Serious: Yes (Hospitalization, Other)
  Sender: TAKEDA
  Company Number: US-TAKEDA-2024TUS114372

PATIENT
  Age: 71 Year
  Sex: Female

DRUGS (1)
  1. FRUQUINTINIB [Suspect]
     Active Substance: FRUQUINTINIB
     Indication: Colon cancer
     Dosage: 5 MILLIGRAM

REACTIONS (4)
  - Renal impairment [Unknown]
  - Fatigue [Unknown]
  - Diarrhoea [Unknown]
  - Daydreaming [Unknown]

NARRATIVE: CASE EVENT DATE: 20241001
